FAERS Safety Report 7070066-1 (Version None)
Quarter: 2010Q4

REPORT INFORMATION
  Report Type: 
  Country: None (occurrence: None)
  Receive Date: 20101028
  Receipt Date: 20100824
  Transmission Date: 20110411
  Serious: No
  Sender: FDA-Public Use
  Company Number: US-WYE-H17133710

PATIENT
  Age: 13 Year
  Sex: Female
  Weight: 54.48 kg

DRUGS (3)
  1. ADVIL [Suspect]
     Indication: PAIN
     Dosage: 2 TABLET EVERY 1 TOT
     Route: 048
     Dates: start: 20100501, end: 20100501
  2. ADVIL [Suspect]
     Dosage: 1 DOSE EVERY 1 TOT
     Route: 048
     Dates: start: 20100601, end: 20100601
  3. ADVIL [Suspect]
     Dosage: 1 DOSE EVERY 1 TOT
     Route: 048
     Dates: start: 20100801, end: 20100801

REACTIONS (2)
  - EYE SWELLING [None]
  - HYPERSENSITIVITY [None]
